FAERS Safety Report 5873709-0 (Version None)
Quarter: 2008Q3

REPORT INFORMATION
  Report Type: 
  Country: None (occurrence: None)
  Receive Date: 20080908
  Receipt Date: 20080828
  Transmission Date: 20090109
  Serious: Yes (Hospitalization)
  Sender: FDA-Public Use
  Company Number: GB-ASTRAZENECA-2008GB01626

PATIENT
  Age: 17983 Day
  Sex: Male

DRUGS (3)
  1. SEROQUEL [Suspect]
     Route: 048
  2. SEROQUEL [Suspect]
     Dosage: GRADUALLY REDUCED TO 275MG IN THE MORNING AND 325MG AT NIGHT OVER TWO WEEKS
     Route: 048
  3. SEROQUEL [Suspect]
     Dosage: 200MG IN THE MORNING AND 250MG AT NIGHT
     Route: 048

REACTIONS (1)
  - NEUTROPENIA [None]
